FAERS Safety Report 16669052 (Version 1)
Quarter: 2019Q3

REPORT INFORMATION
  Report Type: Spontaneous
  Country: US (occurrence: US)
  Receive Date: 20190805
  Receipt Date: 20190805
  Transmission Date: 20191004
  Serious: Yes (Hospitalization)
  Sender: FDA-Public Use
  Company Number: None

PATIENT
  Sex: Female

DRUGS (22)
  1. AMLODIPINE [Concomitant]
     Active Substance: AMLODIPINE BESYLATE
  2. FERREX [Concomitant]
     Active Substance: FERRIC POLYSACCHARIDE COMPLEX
  3. FLUTICASONE SPR [Concomitant]
  4. LEFLUNOMIDE. [Concomitant]
     Active Substance: LEFLUNOMIDE
  5. WELCHOL [Concomitant]
     Active Substance: COLESEVELAM HYDROCHLORIDE
  6. LEVOTHYROXIN [Concomitant]
     Active Substance: LEVOTHYROXINE
  7. VITAMIN D [Concomitant]
     Active Substance: VITAMIN D NOS
  8. ASPIRIN. [Concomitant]
     Active Substance: ASPIRIN
  9. OMEPRAZOLE. [Concomitant]
     Active Substance: OMEPRAZOLE
  10. TANZEUM [Concomitant]
     Active Substance: ALBIGLUTIDE
  11. VITAMIN E [Concomitant]
     Active Substance: .ALPHA.-TOCOPHEROL
  12. BENAZEPRIL AND HYDROCHLOROTHIAZIDE [Concomitant]
     Active Substance: BENAZEPRIL HYDROCHLORIDE\HYDROCHLOROTHIAZIDE
  13. METFORMIN [Concomitant]
     Active Substance: METFORMIN HYDROCHLORIDE
  14. RANITIDINE. [Concomitant]
     Active Substance: RANITIDINE
  15. CIMZIA [Suspect]
     Active Substance: CERTOLIZUMAB PEGOL
     Indication: RHEUMATOID ARTHRITIS
     Dosage: ?          OTHER FREQUENCY:EVERY 2 WEEKS;?
     Route: 058
     Dates: start: 20150804
  16. ATENOLOL. [Concomitant]
     Active Substance: ATENOLOL
  17. LYRICA [Concomitant]
     Active Substance: PREGABALIN
  18. PREDNISONE. [Concomitant]
     Active Substance: PREDNISONE
  19. DIFLUCAN [Concomitant]
     Active Substance: FLUCONAZOLE
  20. FUROSEMIDE. [Concomitant]
     Active Substance: FUROSEMIDE
  21. LANTUS [Concomitant]
     Active Substance: INSULIN GLARGINE
  22. LEVOFLOXACIN. [Concomitant]
     Active Substance: LEVOFLOXACIN

REACTIONS (1)
  - Product dose omission [None]
